FAERS Safety Report 11227488 (Version 1)
Quarter: 2015Q2

REPORT INFORMATION
  Report Type: Report from Study
  Country: US (occurrence: US)
  Receive Date: 20150630
  Receipt Date: 20150630
  Transmission Date: 20150821
  Serious: Yes (Other)
  Sender: FDA-Public Use
  Company Number: US-JNJFOC-20150615997

PATIENT
  Sex: Female

DRUGS (2)
  1. PREVACID [Concomitant]
     Active Substance: LANSOPRAZOLE
     Indication: GASTROOESOPHAGEAL REFLUX DISEASE
  2. INVOKANA [Suspect]
     Active Substance: CANAGLIFLOZIN
     Indication: PRODUCT USED FOR UNKNOWN INDICATION
     Route: 048

REACTIONS (7)
  - Gastrooesophageal reflux disease [Unknown]
  - Decreased appetite [Unknown]
  - Burning sensation [Unknown]
  - Pruritus [Unknown]
  - Goitre [Unknown]
  - Fungal infection [Unknown]
  - Pain [Unknown]

NARRATIVE: CASE EVENT DATE: 2015
